FAERS Safety Report 19175622 (Version 2)
Quarter: 2021Q2

REPORT INFORMATION
  Report Type: Report from Study
  Country: NO (occurrence: NO)
  Receive Date: 20210423
  Receipt Date: 20210517
  Transmission Date: 20210717
  Serious: Yes (Hospitalization, Disabling, Other)
  Sender: FDA-Public Use
  Company Number: NO-PFIZER INC-2021436244

PATIENT
  Age: 37 Year
  Sex: Female
  Weight: 82.5 kg

DRUGS (4)
  1. IBUX [Concomitant]
     Active Substance: IBUPROFEN
     Indication: PERICARDITIS
     Dosage: UNK
     Route: 048
     Dates: start: 20201002
  2. SOMAC [Concomitant]
     Active Substance: PANTOPRAZOLE SODIUM
     Indication: PERICARDITIS
     Dosage: UNK
     Route: 048
     Dates: start: 20201002
  3. TRAZIMERA [Suspect]
     Active Substance: TRASTUZUMAB-QYYP
     Indication: HER2 POSITIVE BREAST CANCER
     Dosage: 8 MG/KG, EVERY 3 WEEKS
     Route: 042
     Dates: start: 20200312, end: 20201113
  4. KOLKICIN [Concomitant]
     Active Substance: COLCHICINE
     Indication: PERICARDITIS
     Dosage: UNK
     Route: 048
     Dates: start: 20201002

REACTIONS (2)
  - Disease recurrence [Recovered/Resolved with Sequelae]
  - Pericarditis [Recovered/Resolved with Sequelae]

NARRATIVE: CASE EVENT DATE: 20201014
